FAERS Safety Report 25204841 (Version 2)
Quarter: 2025Q4

REPORT INFORMATION
  Report Type: Spontaneous
  Country: EU (occurrence: None)
  Receive Date: 20250416
  Receipt Date: 20251113
  Transmission Date: 20260118
  Serious: Yes (Other)
  Sender: UCB
  Company Number: None

PATIENT
  Age: 37 Year

DRUGS (1)
  1. CIMZIA [Suspect]
     Active Substance: CERTOLIZUMAB PEGOL
     Indication: Rheumatoid arthritis
     Dosage: 200 MILLIGRAM, EV 2 WEEKS(QOW)

REACTIONS (2)
  - Rheumatoid arthritis [Recovering/Resolving]
  - Loss of therapeutic response [Unknown]
